FAERS Safety Report 22307139 (Version 6)
Quarter: 2025Q3

REPORT INFORMATION
  Report Type: Spontaneous
  Country: CO (occurrence: CO)
  Receive Date: 20230511
  Receipt Date: 20250918
  Transmission Date: 20251021
  Serious: Yes (Other)
  Sender: MYLAN
  Company Number: CO-MYLANLABS-2023M1048286

PATIENT
  Age: 9 Year
  Sex: Male
  Weight: 19 kg

DRUGS (68)
  1. CYSTAGON [Suspect]
     Active Substance: CYSTEAMINE BITARTRATE
     Indication: Cystinosis
     Route: 048
  2. CYSTAGON [Suspect]
     Active Substance: CYSTEAMINE BITARTRATE
  3. CYSTAGON [Suspect]
     Active Substance: CYSTEAMINE BITARTRATE
  4. CYSTAGON [Suspect]
     Active Substance: CYSTEAMINE BITARTRATE
     Route: 048
  5. CYSTAGON [Suspect]
     Active Substance: CYSTEAMINE BITARTRATE
     Dosage: 1050 MILLIGRAM, QD (EVERY 24 HOURS DIVIDED IN 4 TAKES)
     Route: 065
     Dates: start: 20210419
  6. CYSTAGON [Suspect]
     Active Substance: CYSTEAMINE BITARTRATE
     Dosage: 1050 MILLIGRAM, QD (EVERY 24 HOURS DIVIDED IN 4 TAKES)
     Route: 065
     Dates: start: 20210419
  7. CYSTAGON [Suspect]
     Active Substance: CYSTEAMINE BITARTRATE
     Dosage: 1050 MILLIGRAM, QD (EVERY 24 HOURS DIVIDED IN 4 TAKES)
     Dates: start: 20210419
  8. CYSTAGON [Suspect]
     Active Substance: CYSTEAMINE BITARTRATE
     Dosage: 1050 MILLIGRAM, QD (EVERY 24 HOURS DIVIDED IN 4 TAKES)
     Dates: start: 20210419
  9. CYSTAGON [Suspect]
     Active Substance: CYSTEAMINE BITARTRATE
     Dosage: 300 MILLIGRAM, Q6H (EVERY 6 HOURS)
     Dates: start: 2023, end: 20230502
  10. CYSTAGON [Suspect]
     Active Substance: CYSTEAMINE BITARTRATE
     Dosage: 300 MILLIGRAM, Q6H (EVERY 6 HOURS)
     Route: 065
     Dates: start: 2023, end: 20230502
  11. CYSTAGON [Suspect]
     Active Substance: CYSTEAMINE BITARTRATE
     Dosage: 300 MILLIGRAM, Q6H (EVERY 6 HOURS)
     Route: 065
     Dates: start: 2023, end: 20230502
  12. CYSTAGON [Suspect]
     Active Substance: CYSTEAMINE BITARTRATE
     Dosage: 300 MILLIGRAM, Q6H (EVERY 6 HOURS)
     Dates: start: 2023, end: 20230502
  13. CYSTAGON [Suspect]
     Active Substance: CYSTEAMINE BITARTRATE
     Dosage: 1800 MILLIGRAM, Q6H (IN SEQUENCE 3MG ? 2 MG ? 3 MG ? 2MG)
     Route: 048
  14. CYSTAGON [Suspect]
     Active Substance: CYSTEAMINE BITARTRATE
     Dosage: 1800 MILLIGRAM, Q6H (IN SEQUENCE 3MG ? 2 MG ? 3 MG ? 2MG)
     Route: 048
  15. CYSTAGON [Suspect]
     Active Substance: CYSTEAMINE BITARTRATE
     Dosage: 1800 MILLIGRAM, Q6H (IN SEQUENCE 3MG ? 2 MG ? 3 MG ? 2MG)
  16. CYSTAGON [Suspect]
     Active Substance: CYSTEAMINE BITARTRATE
     Dosage: 1800 MILLIGRAM, Q6H (IN SEQUENCE 3MG ? 2 MG ? 3 MG ? 2MG)
  17. CYSTAGON [Suspect]
     Active Substance: CYSTEAMINE BITARTRATE
     Dosage: 300 MILLIGRAM, Q6H (EVERY 6 HOURS)
     Route: 048
     Dates: start: 20140402
  18. CYSTAGON [Suspect]
     Active Substance: CYSTEAMINE BITARTRATE
     Dosage: 300 MILLIGRAM, Q6H (EVERY 6 HOURS)
     Route: 048
     Dates: start: 20140402
  19. CYSTAGON [Suspect]
     Active Substance: CYSTEAMINE BITARTRATE
     Dosage: 300 MILLIGRAM, Q6H (EVERY 6 HOURS)
     Dates: start: 20140402
  20. CYSTAGON [Suspect]
     Active Substance: CYSTEAMINE BITARTRATE
     Dosage: 300 MILLIGRAM, Q6H (EVERY 6 HOURS)
     Dates: start: 20140402
  21. CYSTAGON [Suspect]
     Active Substance: CYSTEAMINE BITARTRATE
     Dosage: 1500 MILLIGRAM, QD (24 HOURS)
     Dates: start: 202305
  22. CYSTAGON [Suspect]
     Active Substance: CYSTEAMINE BITARTRATE
     Dosage: 1500 MILLIGRAM, QD (24 HOURS)
     Dates: start: 202305
  23. CYSTAGON [Suspect]
     Active Substance: CYSTEAMINE BITARTRATE
     Dosage: 1500 MILLIGRAM, QD (24 HOURS)
     Route: 048
     Dates: start: 202305
  24. CYSTAGON [Suspect]
     Active Substance: CYSTEAMINE BITARTRATE
     Dosage: 1500 MILLIGRAM, QD (24 HOURS)
     Route: 048
     Dates: start: 202305
  25. CYSTEAMINE HYDROCHLORIDE [Suspect]
     Active Substance: CYSTEAMINE HYDROCHLORIDE
     Indication: Cystinosis
     Dosage: 4 GTT DROPS, Q6H (2 DROPS IN EACH EYE EVERY 6 HOURS)
     Dates: start: 20140402
  26. CYSTEAMINE HYDROCHLORIDE [Suspect]
     Active Substance: CYSTEAMINE HYDROCHLORIDE
     Dosage: 4 GTT DROPS, Q6H (2 DROPS IN EACH EYE EVERY 6 HOURS)
     Dates: start: 20140402
  27. CYSTEAMINE HYDROCHLORIDE [Suspect]
     Active Substance: CYSTEAMINE HYDROCHLORIDE
     Dosage: 4 GTT DROPS, Q6H (2 DROPS IN EACH EYE EVERY 6 HOURS)
     Route: 047
     Dates: start: 20140402
  28. CYSTEAMINE HYDROCHLORIDE [Suspect]
     Active Substance: CYSTEAMINE HYDROCHLORIDE
     Dosage: 4 GTT DROPS, Q6H (2 DROPS IN EACH EYE EVERY 6 HOURS)
     Route: 047
     Dates: start: 20140402
  29. CYSTEAMINE HYDROCHLORIDE [Suspect]
     Active Substance: CYSTEAMINE HYDROCHLORIDE
  30. CYSTEAMINE HYDROCHLORIDE [Suspect]
     Active Substance: CYSTEAMINE HYDROCHLORIDE
  31. CYSTEAMINE HYDROCHLORIDE [Suspect]
     Active Substance: CYSTEAMINE HYDROCHLORIDE
     Route: 065
  32. CYSTEAMINE HYDROCHLORIDE [Suspect]
     Active Substance: CYSTEAMINE HYDROCHLORIDE
     Route: 065
  33. Kidcal [Concomitant]
     Dosage: 5 MILLILITER, BID (EVERY 12 HOURS, VO)
  34. Kidcal [Concomitant]
     Dosage: 5 MILLILITER, BID (EVERY 12 HOURS, VO)
     Route: 065
  35. Kidcal [Concomitant]
     Dosage: 5 MILLILITER, BID (EVERY 12 HOURS, VO)
     Route: 065
  36. Kidcal [Concomitant]
     Dosage: 5 MILLILITER, BID (EVERY 12 HOURS, VO)
  37. Nuctis d [Concomitant]
     Dosage: 7 GTT DROPS, BID (EACH 12 HRS)
  38. Nuctis d [Concomitant]
     Dosage: 7 GTT DROPS, BID (EACH 12 HRS)
     Route: 065
  39. Nuctis d [Concomitant]
     Dosage: 7 GTT DROPS, BID (EACH 12 HRS)
     Route: 065
  40. Nuctis d [Concomitant]
     Dosage: 7 GTT DROPS, BID (EACH 12 HRS)
  41. L carnitina [Concomitant]
     Dosage: 200 MILLIGRAM, Q8H (EVERY 8 HRS)
  42. L carnitina [Concomitant]
     Dosage: 200 MILLIGRAM, Q8H (EVERY 8 HRS)
     Route: 065
  43. L carnitina [Concomitant]
     Dosage: 200 MILLIGRAM, Q8H (EVERY 8 HRS)
     Route: 065
  44. L carnitina [Concomitant]
     Dosage: 200 MILLIGRAM, Q8H (EVERY 8 HRS)
  45. POTASSIUM CHLORIDE [Concomitant]
     Active Substance: POTASSIUM CHLORIDE
     Dosage: UNK, QD (1 VIAL EVERY 24 HRS)
  46. POTASSIUM CHLORIDE [Concomitant]
     Active Substance: POTASSIUM CHLORIDE
     Dosage: UNK, QD (1 VIAL EVERY 24 HRS)
     Route: 065
  47. POTASSIUM CHLORIDE [Concomitant]
     Active Substance: POTASSIUM CHLORIDE
     Dosage: UNK, QD (1 VIAL EVERY 24 HRS)
     Route: 065
  48. POTASSIUM CHLORIDE [Concomitant]
     Active Substance: POTASSIUM CHLORIDE
     Dosage: UNK, QD (1 VIAL EVERY 24 HRS)
  49. ASCORBIC ACID [Concomitant]
     Active Substance: ASCORBIC ACID
     Indication: Vitamin supplementation
     Dosage: 10 GTT DROPS, QD (EVERY 24 HRS)
     Route: 065
  50. ASCORBIC ACID [Concomitant]
     Active Substance: ASCORBIC ACID
     Dosage: 10 GTT DROPS, QD (EVERY 24 HRS)
  51. ASCORBIC ACID [Concomitant]
     Active Substance: ASCORBIC ACID
     Dosage: 10 GTT DROPS, QD (EVERY 24 HRS)
  52. ASCORBIC ACID [Concomitant]
     Active Substance: ASCORBIC ACID
     Dosage: 10 GTT DROPS, QD (EVERY 24 HRS)
     Route: 065
  53. ASCORBIC ACID [Concomitant]
     Active Substance: ASCORBIC ACID
     Dosage: 20 GTT DROPS, QD (PER DAY)
     Route: 065
  54. ASCORBIC ACID [Concomitant]
     Active Substance: ASCORBIC ACID
     Dosage: 20 GTT DROPS, QD (PER DAY)
  55. ASCORBIC ACID [Concomitant]
     Active Substance: ASCORBIC ACID
     Dosage: 20 GTT DROPS, QD (PER DAY)
  56. ASCORBIC ACID [Concomitant]
     Active Substance: ASCORBIC ACID
     Dosage: 20 GTT DROPS, QD (PER DAY)
     Route: 065
  57. FERROUS SULFATE [Concomitant]
     Active Substance: FERROUS SULFATE
     Indication: Vitamin supplementation
     Dosage: 10 GTT DROPS, BID (EVERY 12 HRS )
  58. FERROUS SULFATE [Concomitant]
     Active Substance: FERROUS SULFATE
     Dosage: 10 GTT DROPS, BID (EVERY 12 HRS )
     Route: 065
  59. FERROUS SULFATE [Concomitant]
     Active Substance: FERROUS SULFATE
     Dosage: 10 GTT DROPS, BID (EVERY 12 HRS )
     Route: 065
  60. FERROUS SULFATE [Concomitant]
     Active Substance: FERROUS SULFATE
     Dosage: 10 GTT DROPS, BID (EVERY 12 HRS )
  61. OMEPRAZOLE [Concomitant]
     Active Substance: OMEPRAZOLE
     Indication: Gastrointestinal disorder
     Dosage: 10 MILLIGRAM, QD
  62. OMEPRAZOLE [Concomitant]
     Active Substance: OMEPRAZOLE
     Dosage: 10 MILLIGRAM, QD
     Route: 065
  63. OMEPRAZOLE [Concomitant]
     Active Substance: OMEPRAZOLE
     Dosage: 10 MILLIGRAM, QD
     Route: 065
  64. OMEPRAZOLE [Concomitant]
     Active Substance: OMEPRAZOLE
     Dosage: 10 MILLIGRAM, QD
  65. CALCITRIOL [Concomitant]
     Active Substance: CALCITRIOL
     Indication: Vitamin supplementation
     Dosage: 1 MICROGRAM, QD (PER DAY)
  66. CALCITRIOL [Concomitant]
     Active Substance: CALCITRIOL
     Dosage: 1 MICROGRAM, QD (PER DAY)
     Route: 065
  67. CALCITRIOL [Concomitant]
     Active Substance: CALCITRIOL
     Dosage: 1 MICROGRAM, QD (PER DAY)
     Route: 065
  68. CALCITRIOL [Concomitant]
     Active Substance: CALCITRIOL
     Dosage: 1 MICROGRAM, QD (PER DAY)

REACTIONS (1)
  - Amino acid level increased [Not Recovered/Not Resolved]

NARRATIVE: CASE EVENT DATE: 20230301
